FAERS Safety Report 7247427-0 (Version None)
Quarter: 2011Q1

REPORT INFORMATION
  Report Type: 
  Country: None (occurrence: None)
  Receive Date: 20110127
  Receipt Date: 20110119
  Transmission Date: 20110831
  Serious: Yes (Hospitalization, Other)
  Sender: FDA-Public Use
  Company Number: PHHY2011US03431

PATIENT
  Sex: Female

DRUGS (1)
  1. GLEEVEC [Suspect]
     Indication: CHRONIC MYELOID LEUKAEMIA
     Dosage: 400 MG DAILY
     Route: 048
     Dates: start: 20101208

REACTIONS (6)
  - EYE DISCHARGE [None]
  - PYREXIA [None]
  - EYE SWELLING [None]
  - SCAB [None]
  - PERIORBITAL OEDEMA [None]
  - DRUG DISPENSING ERROR [None]
